FAERS Safety Report 16401631 (Version 2)
Quarter: 2019Q3

REPORT INFORMATION
  Report Type: Spontaneous
  Country: US (occurrence: US)
  Receive Date: 20190606
  Receipt Date: 20190904
  Transmission Date: 20191004
  Serious: No
  Sender: FDA-Public Use
  Company Number: US-PTC THERAPEUTICS, INC.-US-2019PTC000792

PATIENT
  Sex: Male

DRUGS (1)
  1. EMFLAZA [Suspect]
     Active Substance: DEFLAZACORT
     Indication: MUSCULAR DYSTROPHY
     Dosage: 60 MG, (6 MG, 18 MG, 36 MG TABLET), QD
     Route: 048
     Dates: start: 20170628

REACTIONS (2)
  - Rash [Unknown]
  - Peripheral swelling [Unknown]
